FAERS Safety Report 24657222 (Version 1)
Quarter: 2024Q4

REPORT INFORMATION
  Report Type: Spontaneous
  Country: CN (occurrence: CN)
  Receive Date: 20241125
  Receipt Date: 20241125
  Transmission Date: 20250114
  Serious: Yes (Hospitalization, Disabling, Other)
  Sender: BAXTER
  Company Number: None

PATIENT
  Age: 52 Year
  Sex: Male
  Weight: 80 kg

DRUGS (3)
  1. MANNITOL [Suspect]
     Active Substance: MANNITOL
     Indication: Diuretic therapy
     Dosage: 125 ML, TID (DOSAGE FORM: INJECTION)
     Route: 041
     Dates: start: 20241112, end: 20241113
  2. MANNITOL [Suspect]
     Active Substance: MANNITOL
     Indication: Reduction of increased intracranial pressure
     Dosage: 125 ML, QID (DOSAGE FORM: INJECTION)
     Route: 041
     Dates: start: 20241113, end: 20241116
  3. MANNITOL [Suspect]
     Active Substance: MANNITOL
     Indication: Brain oedema

REACTIONS (7)
  - Circulatory collapse [Unknown]
  - Acute kidney injury [Recovering/Resolving]
  - Blood potassium decreased [Recovering/Resolving]
  - Hyperkalaemia [Recovering/Resolving]
  - Hypernatraemia [Recovering/Resolving]
  - Blood creatinine increased [Recovering/Resolving]
  - Electrolyte imbalance [Recovering/Resolving]

NARRATIVE: CASE EVENT DATE: 20241114
